FAERS Safety Report 7532842-8 (Version None)
Quarter: 2011Q2

REPORT INFORMATION
  Report Type: 
  Country: None (occurrence: None)
  Receive Date: 20110601
  Receipt Date: 20110526
  Transmission Date: 20111010
  Serious: Yes (Hospitalization, Other)
  Sender: FDA-Public Use
  Company Number: 2010SP015869

PATIENT
  Age: 40 Year
  Sex: Female
  Weight: 68.0396 kg

DRUGS (5)
  1. NUVARING [Suspect]
     Indication: CONTRACEPTION
     Dates: start: 20080227, end: 20080701
  2. TOPAMAX [Concomitant]
  3. BUTALBITAL [Concomitant]
  4. ADVAIR DISKUS 100/50 [Concomitant]
  5. EFFEXOR [Concomitant]

REACTIONS (6)
  - HAEMATURIA [None]
  - PULMONARY EMBOLISM [None]
  - PAIN [None]
  - ATELECTASIS [None]
  - PLEURAL EFFUSION [None]
  - PULMONARY INFARCTION [None]
